FAERS Safety Report 9978150 (Version 1)
Quarter: 2014Q1

REPORT INFORMATION
  Report Type: Other
  Country: US (occurrence: US)
  Receive Date: 20140306
  Receipt Date: 20140306
  Transmission Date: 20141002
  Serious: Yes (Death)
  Sender: FDA-Public Use
  Company Number: US-FRI-1000054901

PATIENT
  Age: 59 Year
  Sex: Female

DRUGS (8)
  1. NEBIVOLOL [Suspect]
  2. VERAPAMIL [Suspect]
  3. SERTRALINE [Suspect]
  4. GABAPENTIN [Suspect]
  5. LEVETIRACETAM [Suspect]
  6. DANAZOL [Suspect]
  7. PRAMIPEXOLE [Suspect]
  8. ALBUTEROL/IPRATROPIUM [Suspect]

REACTIONS (1)
  - Completed suicide [Fatal]
